FAERS Safety Report 20635813 (Version 1)
Quarter: 2022Q1

REPORT INFORMATION
  Report Type: Spontaneous
  Country: FR (occurrence: FR)
  Receive Date: 20220325
  Receipt Date: 20220325
  Transmission Date: 20220423
  Serious: Yes (Other)
  Sender: FDA-Public Use
  Company Number: None

PATIENT
  Age: 18 Year
  Sex: Female

DRUGS (3)
  1. NICOTINE [Suspect]
     Active Substance: NICOTINE
     Indication: Product used for unknown indication
     Dosage: 120 MG, (JOLLIEZ HARD CANDY 120MG CHERRY: 1 CANDY
     Route: 048
     Dates: start: 20220113, end: 20220113
  2. NITROUS OXIDE [Suspect]
     Active Substance: NITROUS OXIDE
     Indication: Product used for unknown indication
     Dosage: 5 TO 10 BALLOONS PER EVENING  (CARTRIDGE FOR SIPHON)
     Dates: start: 202201, end: 20220113
  3. NITROUS OXIDE [Suspect]
     Active Substance: NITROUS OXIDE
     Dosage: UNSPECIFIED
     Dates: end: 202201

REACTIONS (7)
  - Headache [Recovering/Resolving]
  - Malaise [Recovered/Resolved]
  - Nausea [Recovered/Resolved]
  - Vomiting [Recovered/Resolved]
  - Paraesthesia [Recovered/Resolved]
  - Drug abuse [Recovering/Resolving]
  - Tremor [Recovered/Resolved]

NARRATIVE: CASE EVENT DATE: 20220113
